FAERS Safety Report 10381967 (Version 1)
Quarter: 2014Q3

REPORT INFORMATION
  Report Type: Spontaneous
  Country: IT (occurrence: IT)
  Receive Date: 20140813
  Receipt Date: 20140813
  Transmission Date: 20150326
  Serious: Yes (Other)
  Sender: FDA-Public Use
  Company Number: IT-ACTAVIS-2014-17353

PATIENT
  Age: 57 Year
  Sex: Female
  Weight: 70 kg

DRUGS (5)
  1. 5-FLUOROURACIL                     /00098801/ [Suspect]
     Active Substance: FLUOROURACIL
     Dosage: 3110 MG CYCLICAL
     Route: 041
     Dates: start: 20140308, end: 20140704
  2. FOLINIC ACID                       /00566702/ [Concomitant]
     Indication: PRODUCT USED FOR UNKNOWN INDICATION
     Dosage: 260 MG UNK FREQ.
     Dates: start: 20140308, end: 20140704
  3. ERBITUX [Suspect]
     Active Substance: CETUXIMAB
     Indication: ADENOCARCINOMA OF COLON
     Dosage: 430 MG, CYCLICAL
     Route: 042
     Dates: start: 20140308, end: 20140704
  4. 5-FLUOROURACIL                     /00098801/ [Suspect]
     Active Substance: FLUOROURACIL
     Indication: ADENOCARCINOMA OF COLON
     Dosage: 519 MG, CYCLICAL
     Route: 040
     Dates: start: 20140308, end: 20140704
  5. IRINOTECAN (UNKNOWN) [Suspect]
     Active Substance: IRINOTECAN
     Indication: ADENOCARCINOMA OF COLON
     Dosage: 320 MG, CYCLICAL
     Route: 042
     Dates: start: 20140308, end: 20140704

REACTIONS (4)
  - Rash [Recovering/Resolving]
  - Diarrhoea [Recovering/Resolving]
  - Neutropenia [Recovering/Resolving]
  - Alopecia [Recovering/Resolving]

NARRATIVE: CASE EVENT DATE: 20140320
